FAERS Safety Report 5234594-3 (Version None)
Quarter: 2007Q1

REPORT INFORMATION
  Report Type: 
  Country: None (occurrence: None)
  Receive Date: 20070209
  Receipt Date: 20070207
  Transmission Date: 20070707
  Serious: Yes (Death)
  Sender: FDA-Public Use
  Company Number: US-BRISTOL-MYERS SQUIBB COMPANY-13672217

PATIENT
  Sex: Female

DRUGS (1)
  1. VEPESID [Suspect]

REACTIONS (1)
  - DEATH [None]
